FAERS Safety Report 12417853 (Version 1)
Quarter: 2016Q2

REPORT INFORMATION
  Report Type: Spontaneous
  Country: DK (occurrence: DK)
  Receive Date: 20160531
  Receipt Date: 20160531
  Transmission Date: 20160815
  Serious: Yes (Hospitalization)
  Sender: FDA-Public Use
  Company Number: PHHY2016DK070688

PATIENT
  Age: 34 Year
  Sex: Female

DRUGS (2)
  1. MALONETTA [Suspect]
     Active Substance: ETHINYL ESTRADIOL\LEVONORGESTREL
     Indication: CONTRACEPTION
     Route: 048
     Dates: start: 20130603, end: 201502
  2. MICROGYN [Suspect]
     Active Substance: ETHINYL ESTRADIOL\LEVONORGESTREL
     Indication: CONTRACEPTION
     Route: 048
     Dates: start: 201502

REACTIONS (6)
  - Hemiparesis [Recovered/Resolved]
  - Muscular weakness [Not Recovered/Not Resolved]
  - Fatigue [Not Recovered/Not Resolved]
  - Cerebral haemorrhage [Recovered/Resolved with Sequelae]
  - Disturbance in attention [Not Recovered/Not Resolved]
  - Memory impairment [Not Recovered/Not Resolved]

NARRATIVE: CASE EVENT DATE: 20150309
